FAERS Safety Report 9115103 (Version 2)
Quarter: 2013Q2

REPORT INFORMATION
  Report Type: Spontaneous
  Country: US (occurrence: US)
  Receive Date: 20130225
  Receipt Date: 20130522
  Transmission Date: 20140414
  Serious: Yes (Other)
  Sender: FDA-Public Use
  Company Number: US-COVIDIEN/TYCO HEALTHCARE/MALLINCKRODT-T201204314

PATIENT
  Age: 11 Year
  Sex: Male

DRUGS (2)
  1. GABLOFEN [Suspect]
     Indication: MUSCLE SPASTICITY
     Dosage: 150 MCG/DAY
     Route: 037
  2. GABLOFEN [Suspect]
     Dosage: 100 MCG/DAY

REACTIONS (2)
  - Overdose [Unknown]
  - Lethargy [Unknown]
